FAERS Safety Report 25486739 (Version 3)
Quarter: 2025Q4

REPORT INFORMATION
  Report Type: Spontaneous
  Country: GB (occurrence: GB)
  Receive Date: 20250627
  Receipt Date: 20251209
  Transmission Date: 20260118
  Serious: Yes (Other)
  Sender: AUROBINDO
  Company Number: GB-AMGEN-GBRSP2025084315

PATIENT
  Age: 56 Year
  Sex: Female

DRUGS (6)
  1. CLOPIDOGREL [Suspect]
     Active Substance: CLOPIDOGREL BISULFATE
     Indication: Product used for unknown indication
     Dosage: UNK, SECOND DOSE
     Route: 065
  2. HYRIMOZ [Suspect]
     Active Substance: ADALIMUMAB-ADAZ
     Indication: Rheumatoid arthritis
     Dosage: 40 MILLIGRAM FOR EVERY 2 WEEKS
  3. HYRIMOZ [Suspect]
     Active Substance: ADALIMUMAB-ADAZ
     Dosage: 80 MILLIGRAM (1 WEEK) (80 MG, QW (40 MILLIGRAM HYRIMOZ 40 MG)
  4. HYRIMOZ [Suspect]
     Active Substance: ADALIMUMAB-ADAZ
     Dosage: 120 DOSAGE FORM (120 DOSAGE FORM, 40.000DF TIW)
  5. HYRIMOZ [Suspect]
     Active Substance: ADALIMUMAB-ADAZ
     Dosage: 240 DOSAGE FORM (120 DOSAGE FORM, 40.000DF TIW)
  6. HYRIMOZ [Suspect]
     Active Substance: ADALIMUMAB-ADAZ
     Dosage: 160 DOSAGE FORM, EVERY WEEK

REACTIONS (9)
  - Gastrooesophageal reflux disease [Not Recovered/Not Resolved]
  - Hypoglycaemia [Unknown]
  - Fatigue [Unknown]
  - Constipation [Unknown]
  - Contusion [Unknown]
  - Abdominal pain [Unknown]
  - Decreased appetite [Recovering/Resolving]
  - Drug ineffective [Recovering/Resolving]
  - Depression [Recovering/Resolving]
